FAERS Safety Report 6107557-3 (Version None)
Quarter: 2009Q1

REPORT INFORMATION
  Report Type: 
  Country: None (occurrence: None)
  Receive Date: 20090309
  Receipt Date: 20090225
  Transmission Date: 20090719
  Serious: Yes (Other)
  Sender: FDA-Public Use
  Company Number: PHHY2009ES05347

PATIENT
  Age: 71 Year
  Sex: Female

DRUGS (5)
  1. VALSARTAN [Suspect]
     Dosage: 320 MG
     Dates: start: 20081201, end: 20090101
  2. EUTIROX [Concomitant]
  3. VERAPAMIL HCL [Concomitant]
     Dosage: 240 MG
  4. FUROSEMIDE [Concomitant]
     Dosage: 10 MG
  5. SIMVASTATIN [Concomitant]
     Dosage: 10 MG

REACTIONS (4)
  - MASTICATION DISORDER [None]
  - RASH [None]
  - SKIN DISORDER [None]
  - TONGUE OEDEMA [None]
